FAERS Safety Report 10551072 (Version 1)
Quarter: 2014Q4

REPORT INFORMATION
  Report Type: Spontaneous
  Country: US (occurrence: None)
  Receive Date: 20141028
  Receipt Date: 20141028
  Transmission Date: 20150529
  Serious: Yes (Disabling)
  Sender: FDA-Public Use
  Company Number: None

PATIENT
  Age: 53 Year
  Sex: Female
  Weight: 58.97 kg

DRUGS (2)
  1. RITE AID COLD RELIEF ORAL SPRAY [Suspect]
     Active Substance: HOMEOPATHICS
     Indication: PROPHYLAXIS
     Dates: start: 20141021, end: 20141025
  2. RITE AID COLD RELIEF ORAL SPRAY [Suspect]
     Active Substance: HOMEOPATHICS
     Indication: NASOPHARYNGITIS
     Dates: start: 20141021, end: 20141025

REACTIONS (2)
  - Parosmia [None]
  - Ageusia [None]

NARRATIVE: CASE EVENT DATE: 20141025
